FAERS Safety Report 6454051-6 (Version None)
Quarter: 2009Q4

REPORT INFORMATION
  Report Type: 
  Country: None (occurrence: None)
  Receive Date: 20091124
  Receipt Date: 20091117
  Transmission Date: 20100525
  Serious: Yes (Other)
  Sender: FDA-Public Use
  Company Number: B0589980A

PATIENT
  Sex: Male

DRUGS (7)
  1. ALKERAN [Suspect]
     Indication: STEM CELL TRANSPLANT
     Dosage: 70MGM2 PER DAY
     Route: 042
  2. NASEA [Concomitant]
     Dosage: .3MG PER DAY
     Route: 042
     Dates: start: 20090817, end: 20090818
  3. FUROSEMIDE [Concomitant]
     Dosage: 80MG PER DAY
     Route: 042
     Dates: start: 20090817, end: 20090819
  4. SOSEGON [Concomitant]
     Dosage: 15MG PER DAY
     Dates: start: 20090821, end: 20090821
  5. GRAN [Concomitant]
     Dosage: 450MCG PER DAY
     Dates: start: 20090825, end: 20090826
  6. OMEGACIN [Concomitant]
     Dosage: .3G PER DAY
     Route: 042
     Dates: start: 20090826, end: 20090826
  7. PENTAZOCINE [Concomitant]

REACTIONS (3)
  - ABDOMINAL PAIN [None]
  - BLOOD AMYLASE INCREASED [None]
  - SALIVARY GLAND PAIN [None]
